FAERS Safety Report 20575612 (Version 1)
Quarter: 2022Q1

REPORT INFORMATION
  Report Type: Spontaneous
  Country: US (occurrence: US)
  Receive Date: 20220310
  Receipt Date: 20220310
  Transmission Date: 20220423
  Serious: No
  Sender: FDA-Public Use
  Company Number: US-drreddys-SPO/USA/22/0147531

PATIENT
  Age: 28 Year

DRUGS (2)
  1. ZENATANE [Suspect]
     Active Substance: ISOTRETINOIN
     Indication: Product used for unknown indication
     Dosage: RMA ISSUE DATE: 20 DECEMBER 2021 01:07:30 PM, 22 OCTOBER 2021 12:00:00 AM, 22 SEPTEMBER 2021 12:00:0
  2. ZENATANE [Suspect]
     Active Substance: ISOTRETINOIN
     Dosage: RMA ISSUE DATE: 29 APRIL 2021 12:00:00 AM, 24 MARCH 2021 12:00:00 AM, 19 FEBRUARY 2021 12:00:00 AM,

REACTIONS (1)
  - Dry skin [Unknown]
